FAERS Safety Report 18084650 (Version 8)
Quarter: 2020Q4

REPORT INFORMATION
  Report Type: Report from Study
  Country: US (occurrence: US)
  Receive Date: 20200728
  Receipt Date: 20201023
  Transmission Date: 20210113
  Serious: Yes (Other)
  Sender: FDA-Public Use
  Company Number: NVSC2020US209869

PATIENT
  Age: 63 Year
  Sex: Female
  Weight: 110.77 kg

DRUGS (4)
  1. GILENYA [Suspect]
     Active Substance: FINGOLIMOD HYDROCHLORIDE
     Indication: RELAPSING-REMITTING MULTIPLE SCLEROSIS
     Dosage: 0.5 MG, QD
     Route: 048
     Dates: start: 20200713
  2. GILENYA [Suspect]
     Active Substance: FINGOLIMOD HYDROCHLORIDE
     Dosage: 0.5 MG
     Route: 048
  3. GILENYA [Suspect]
     Active Substance: FINGOLIMOD HYDROCHLORIDE
     Dosage: 0.5 MG, QD
     Route: 048
  4. GILENYA [Suspect]
     Active Substance: FINGOLIMOD HYDROCHLORIDE
     Indication: MULTIPLE SCLEROSIS
     Dosage: 0.5 MG (APPROXIMATELY FOR 2 MONTHS)
     Route: 065

REACTIONS (15)
  - Fatigue [Unknown]
  - Skin exfoliation [Unknown]
  - Blister [Unknown]
  - Somnolence [Unknown]
  - Hyperhidrosis [Unknown]
  - Heart rate decreased [Unknown]
  - Palpitations [Unknown]
  - Skin lesion [Unknown]
  - Blood pressure increased [Unknown]
  - Dyspnoea [Unknown]
  - Neoplasm skin [Unknown]
  - Erythema [Unknown]
  - Headache [Unknown]
  - Skin irritation [Unknown]
  - Pruritus [Unknown]

NARRATIVE: CASE EVENT DATE: 20200722
